FAERS Safety Report 8587537-9 (Version None)
Quarter: 2012Q3

REPORT INFORMATION
  Report Type: 
  Country: None (occurrence: None)
  Receive Date: 20120810
  Receipt Date: 20120803
  Transmission Date: 20120928
  Serious: Yes (Life-Threatening, Hospitalization, Other)
  Sender: FDA-Public Use
  Company Number: US-BAYER-2012-074657

PATIENT
  Age: 71 Year
  Sex: Male
  Weight: 66.5 kg

DRUGS (17)
  1. NEXAVAR [Suspect]
     Indication: METASTATIC MALIGNANT MELANOMA
     Dosage: 400 MG, BID
     Route: 048
     Dates: start: 20120703, end: 20120715
  2. BORTEZOMIB [Suspect]
     Dosage: DOSE: 1.3 MG/M2
     Route: 042
     Dates: start: 20120711, end: 20120711
  3. LIDOCAINE [Concomitant]
     Indication: PAIN
     Dosage: 10 ML, Q4HOURS PRN
  4. SENNA-MINT WAF [Concomitant]
     Indication: CONSTIPATION
     Dosage: 1 TAB BID, PRN
     Route: 048
  5. TAMSULOSIN HCL [Concomitant]
     Dosage: 0.4 MG, QD
     Route: 048
  6. PREDNISONE TAB [Concomitant]
     Dosage: UNK, TAPER
     Route: 048
  7. FISH OIL [Concomitant]
     Dosage: 1000 MG, QD (500 MG CAPSULE, TAKE 2)
     Route: 048
  8. GLUCOSAMINE [Concomitant]
     Dosage: 750 MG, BID
     Route: 048
  9. DIPHENHYDRAMINE HYDROCHLORIDE [Concomitant]
     Indication: PAIN
     Dosage: 10 ML, Q 4 HOURS PRN
  10. LISINOPRIL [Concomitant]
     Dosage: 10 MG, QD
     Route: 048
  11. MAGNESIUM HYDROXIDE TAB [Concomitant]
     Indication: PAIN
     Dosage: 10 ML, Q 4 HOURS PRN
  12. LIPITOR [Concomitant]
     Dosage: 20 MG, HS
     Route: 048
  13. ZOFRAN [Concomitant]
     Indication: NAUSEA
     Dosage: 8 MG, Q 8 HOURS PRN
     Route: 048
  14. LIDEX [Concomitant]
     Dosage: 1 APPLICATION BID TO RED AREAS
     Route: 061
  15. BORTEZOMIB [Suspect]
     Indication: METASTATIC MALIGNANT MELANOMA
     Dosage: DOSE: 1.3 MG/M2
     Route: 042
     Dates: start: 20120703, end: 20120703
  16. OMEPRAZOLE [Concomitant]
     Dosage: 20 MG, BID
     Route: 048
  17. ASPIRIN [Concomitant]
     Dosage: 81 MG, QD
     Route: 048

REACTIONS (4)
  - PLEURAL EFFUSION [None]
  - DYSPNOEA [None]
  - RASH [None]
  - LYMPHOPENIA [None]
